FAERS Safety Report 6153587-5 (Version None)
Quarter: 2009Q2

REPORT INFORMATION
  Report Type: 
  Country: None (occurrence: None)
  Receive Date: 20090409
  Receipt Date: 20090325
  Transmission Date: 20091009
  Serious: Yes (Hospitalization)
  Sender: FDA-Public Use
  Company Number: DSJ-2009-01189

PATIENT
  Age: 81 Year
  Sex: Female
  Weight: 68 kg

DRUGS (11)
  1. OLMESARTAN MEDOXOMIL [Suspect]
     Indication: HYPERTENSION
     Dosage: 20 MG (20 MG,1 IN 1 D),PER ORAL
     Route: 048
     Dates: start: 20080820
  2. ALDACTONE [Suspect]
     Indication: HYPERTENSION
     Dosage: 25 MG (25 MG,1 IN 1 D),PER ORAL
     Route: 047
     Dates: end: 20081222
  3. ACETYLSALICYLIC ACID SRT [Concomitant]
  4. ACTOS [Concomitant]
  5. AMARYL [Concomitant]
  6. DIART (AZOSEMIDE) (TABLET) (AZOSEMIDE) [Concomitant]
  7. AMLODIPINE OD (AMLODIPINE) (TABLET) (AMLODIPINE) [Concomitant]
  8. TAKEPRON CD (LANSOPRAZOLE) (TABLET) (LANSOPRAZOLE) [Concomitant]
  9. FRANDOL (ISOSORBIDE DINITRATE) (POULTICE OR PATCH) (ISOSORBIDE DINITRA [Concomitant]
  10. INGREDIENT UNKNOWN (GRANULES) [Concomitant]
  11. DIURETICS (DIURETICS) (TABLET) [Concomitant]

REACTIONS (5)
  - ACUTE MYOCARDIAL INFARCTION [None]
  - ATRIAL FIBRILLATION [None]
  - BRADYCARDIA [None]
  - HYPERKALAEMIA [None]
  - URINARY TRACT INFECTION [None]
